FAERS Safety Report 12722850 (Version 1)
Quarter: 2016Q3

REPORT INFORMATION
  Report Type: Spontaneous
  Country: CH (occurrence: CH)
  Receive Date: 20160907
  Receipt Date: 20160907
  Transmission Date: 20161109
  Serious: Yes (Hospitalization)
  Sender: FDA-Public Use
  Company Number: CH-ASTRAZENECA-2016SE93096

PATIENT
  Age: 593 Month
  Sex: Male
  Weight: 83 kg

DRUGS (8)
  1. OLFEN [Suspect]
     Active Substance: DICLOFENAC SODIUM
     Indication: PROCEDURAL PAIN
     Route: 048
     Dates: start: 20140402, end: 20140407
  2. PANTOZOL [Concomitant]
     Active Substance: PANTOPRAZOLE SODIUM
     Route: 048
     Dates: start: 20140402
  3. IRFEN [Suspect]
     Active Substance: IBUPROFEN
     Indication: GROIN PAIN
     Route: 048
     Dates: start: 20160527, end: 20160531
  4. DAFALGAN [Suspect]
     Active Substance: ACETAMINOPHEN
     Indication: GROIN PAIN
     Dosage: 1.0G UNKNOWN
     Route: 048
     Dates: start: 20140402, end: 20160531
  5. NOVALGIN [Concomitant]
     Active Substance: METAMIZOLE SODIUM
     Indication: GROIN PAIN
     Route: 048
     Dates: start: 20140402
  6. CRESTOR [Suspect]
     Active Substance: ROSUVASTATIN CALCIUM
     Indication: DYSLIPIDAEMIA
     Route: 048
     Dates: end: 20160608
  7. ESOMEP [Concomitant]
     Active Substance: ESOMEPRAZOLE
     Route: 048
  8. XYZAL [Concomitant]
     Active Substance: LEVOCETIRIZINE DIHYDROCHLORIDE
     Route: 048

REACTIONS (4)
  - Autoimmune hepatitis [Recovering/Resolving]
  - Drug-induced liver injury [Unknown]
  - Portal hypertension [Unknown]
  - Ascites [Unknown]

NARRATIVE: CASE EVENT DATE: 201404
